FAERS Safety Report 6384606-9 (Version None)
Quarter: 2009Q4

REPORT INFORMATION
  Report Type: 
  Country: None (occurrence: None)
  Receive Date: 20091001
  Receipt Date: 20090921
  Transmission Date: 20100525
  Serious: Yes (Hospitalization)
  Sender: FDA-Public Use
  Company Number: PHEH2009US11607

PATIENT
  Sex: Female
  Weight: 50.34 kg

DRUGS (2)
  1. RECLAST [Suspect]
     Indication: OSTEOPOROSIS
     Dosage: 5 MG ONCE YEARLY
     Route: 042
     Dates: start: 20090826, end: 20090826
  2. PERCOCET [Concomitant]

REACTIONS (3)
  - ARTHRALGIA [None]
  - CONVULSION [None]
  - PAIN IN JAW [None]
